FAERS Safety Report 7384806-5 (Version None)
Quarter: 2011Q1

REPORT INFORMATION
  Report Type: 
  Country: None (occurrence: None)
  Receive Date: 20110330
  Receipt Date: 20100908
  Transmission Date: 20110831
  Serious: Yes (Hospitalization, Other)
  Sender: FDA-Public Use
  Company Number: US-BAYER-201022217NA

PATIENT
  Sex: Female
  Weight: 52.154 kg

DRUGS (14)
  1. TRAMADOL [Concomitant]
  2. LIDODERM [Concomitant]
     Dosage: UNK
     Dates: start: 20080623
  3. ANTIBIOTICS [Concomitant]
  4. DARVOCET [Concomitant]
     Dosage: UNK
     Dates: start: 20080723
  5. LEVOXYL [Concomitant]
     Indication: HYPOTHYROIDISM
  6. PROPOXYPHENE NAPSYLATE W/ ACETAMINOPHEN [Concomitant]
  7. LORAZEPAM [Concomitant]
  8. ACIPHEX [Concomitant]
  9. ZOLPIDEM [Concomitant]
     Indication: INSOMNIA
  10. ASACOL [Concomitant]
  11. YAZ [Suspect]
     Indication: ORAL CONTRACEPTION
     Dates: start: 20080201, end: 20090101
  12. NSAID'S [Concomitant]
  13. DICYCLOMINE [Concomitant]
  14. MEDROL [Concomitant]
     Dosage: UNK
     Dates: start: 20080723

REACTIONS (3)
  - BILIARY DYSKINESIA [None]
  - GALLBLADDER DISORDER [None]
  - CHOLECYSTITIS CHRONIC [None]
